FAERS Safety Report 12574092 (Version 1)
Quarter: 2016Q3

REPORT INFORMATION
  Report Type: Spontaneous
  Country: US (occurrence: None)
  Receive Date: 20160719
  Receipt Date: 20160719
  Transmission Date: 20161109
  Serious: No
  Sender: FDA-Public Use
  Company Number: None

PATIENT
  Age: 66 Year
  Sex: Male

DRUGS (1)
  1. RIBAVIRIN TAB 200MG [Suspect]
     Active Substance: RIBAVIRIN
     Indication: CHRONIC HEPATITIS C

REACTIONS (5)
  - Fall [None]
  - Myalgia [None]
  - Gait disturbance [None]
  - Pain in extremity [None]
  - White blood cell count decreased [None]

NARRATIVE: CASE EVENT DATE: 20160718
